FAERS Safety Report 5218142-X (Version None)
Quarter: 2007Q1

REPORT INFORMATION
  Report Type: 
  Country: None (occurrence: None)
  Receive Date: 20070124
  Receipt Date: 20070118
  Transmission Date: 20070707
  Serious: Yes (Hospitalization)
  Sender: FDA-Public Use
  Company Number: US-ALLERGAN-0700577US

PATIENT
  Age: 11 Day
  Sex: Male

DRUGS (2)
  1. ALPHAGAN[R] [Suspect]
     Indication: INTRAOCULAR PRESSURE INCREASED
     Dosage: 1 GTT, SINGLE
     Route: 047
  2. ECHOTHIOPHATE IODIDE [Suspect]
     Indication: INTRAOCULAR PRESSURE INCREASED
     Dosage: 1 GTT, SINGLE
     Route: 047

REACTIONS (2)
  - APNOEIC ATTACK [None]
  - LETHARGY [None]
